FAERS Safety Report 18917014 (Version 1)
Quarter: 2021Q1

REPORT INFORMATION
  Report Type: Spontaneous
  Country: JP (occurrence: JP)
  Receive Date: 20210219
  Receipt Date: 20210219
  Transmission Date: 20210420
  Serious: Yes (Hospitalization)
  Sender: FDA-Public Use
  Company Number: JP-DSJP-DSJ-2021-104911

PATIENT
  Age: 6 Decade
  Sex: Male
  Weight: 54 kg

DRUGS (14)
  1. AMIODARONE                         /00133102/ [Suspect]
     Active Substance: AMIODARONE
     Indication: CARDIAC FAILURE
     Dosage: 100MG/DAY
     Route: 048
  2. BISOPROLOL                         /00802602/ [Concomitant]
     Active Substance: BISOPROLOL
     Dosage: 5MG/DAY
     Route: 048
  3. VALSARTAN. [Concomitant]
     Active Substance: VALSARTAN
     Dosage: 20MG/DAY
     Route: 048
  4. LIXIANA TABLETS [Suspect]
     Active Substance: EDOXABAN TOSYLATE
     Indication: PRODUCT USED FOR UNKNOWN INDICATION
     Dosage: 30MG/DAY
     Route: 048
  5. BISOPROLOL                         /00802602/ [Concomitant]
     Active Substance: BISOPROLOL
     Indication: CARDIAC FAILURE
     Dosage: 2.5MG/DAY
     Route: 048
  6. LANDIOLOL [Concomitant]
     Active Substance: LANDIOLOL
     Indication: CARDIAC FAILURE
     Dosage: 2UG/KG/MIN
     Route: 065
  7. LANDIOLOL [Concomitant]
     Active Substance: LANDIOLOL
     Dosage: 5UG/KG/MIN
     Route: 065
  8. LANDIOLOL [Concomitant]
     Active Substance: LANDIOLOL
     Dosage: 2UG/KG/MIN
     Route: 065
  9. HANP FOR INJECTION 1000 [Suspect]
     Active Substance: CARPERITIDE
     Indication: CARDIAC FAILURE
     Dosage: 0.02UG/KG/MIN
     Route: 065
  10. BISOPROLOL                         /00802602/ [Concomitant]
     Active Substance: BISOPROLOL
     Dosage: 3.125MG/DAY
     Route: 048
  11. LANDIOLOL [Concomitant]
     Active Substance: LANDIOLOL
     Dosage: 10UG/KG/MIN
     Route: 065
  12. FUROSEMIDE. [Concomitant]
     Active Substance: FUROSEMIDE
     Indication: CARDIAC FAILURE
     Dosage: 20MG/DAY
     Route: 048
  13. BENIDIPINE [Concomitant]
     Active Substance: BENIDIPINE
     Dosage: 8MG/DAY
     Route: 048
  14. BISOPROLOL                         /00802602/ [Concomitant]
     Active Substance: BISOPROLOL
     Dosage: 3.75MG/DAY
     Route: 048

REACTIONS (4)
  - Atrial fibrillation [Recovering/Resolving]
  - Cardiac failure [Recovering/Resolving]
  - Pneumonia [Unknown]
  - Liver disorder [Unknown]
